FAERS Safety Report 23559566 (Version 1)
Quarter: 2024Q1

REPORT INFORMATION
  Report Type: Spontaneous
  Country: JP (occurrence: JP)
  Receive Date: 20240223
  Receipt Date: 20240223
  Transmission Date: 20240410
  Serious: Yes (Hospitalization, Other)
  Sender: FDA-Public Use
  Company Number: JP-PFIZER INC-202400045682

PATIENT
  Age: 91 Year
  Sex: Male

DRUGS (2)
  1. PAXLOVID [Suspect]
     Active Substance: NIRMATRELVIR\RITONAVIR
     Indication: COVID-19 treatment
     Dosage: UNK
     Route: 048
  2. BENIDIPINE [Concomitant]
     Active Substance: BENIDIPINE
     Dosage: UNK

REACTIONS (2)
  - Contraindicated product administered [Unknown]
  - Altered state of consciousness [Unknown]
